FAERS Safety Report 5995805-X (Version None)
Quarter: 2008Q4

REPORT INFORMATION
  Report Type: 
  Country: None (occurrence: None)
  Receive Date: 20081212
  Receipt Date: 20081203
  Transmission Date: 20090506
  Serious: Yes (Other)
  Sender: FDA-Public Use
  Company Number: JP-JNJFOC-20081005134

PATIENT
  Age: 67 Year
  Sex: Female
  Weight: 50 kg

DRUGS (6)
  1. REMICADE [Suspect]
     Dosage: DOSES 2 THROUGH 6 ADMINISTERED ON UNKNOWN DATES
     Route: 042
  2. REMICADE [Suspect]
     Indication: RHEUMATOID ARTHRITIS
     Dosage: 6 INFUSIONS ON UNKNOWN DATES
     Route: 042
  3. RHEUMATREX [Suspect]
     Indication: RHEUMATOID ARTHRITIS
     Dosage: 6 INFUSIONS ON UNKNOWN DATES
     Route: 048
  4. ADRENAL HORMONE PREPARATION [Concomitant]
  5. STEROID [Concomitant]
  6. NON-STEROIDAL ANTI-INFLAMMATORY [Concomitant]

REACTIONS (1)
  - LYMPHOMA [None]
